FAERS Safety Report 10687429 (Version 1)
Quarter: 2014Q4

REPORT INFORMATION
  Report Type: Spontaneous
  Country: DE (occurrence: None)
  Receive Date: 20141230
  Receipt Date: 20141230
  Transmission Date: 20150529
  Serious: Yes (Other)
  Sender: FDA-Public Use
  Company Number: 8003060

PATIENT
  Age: 73 Year
  Sex: Female

DRUGS (1)
  1. NOVOTHYRAL (NOVOTHYRAL) (LEVOTHYROXINE SODIUM, LIOTHYRONINE SODIUM) [Suspect]
     Active Substance: LEVOTHYROXINE SODIUM\LIOTHYRONINE SODIUM
     Indication: AUTOIMMUNE THYROIDITIS
     Dosage: 100 (UNSPECIFIED UNIT), ORAL
     Route: 048

REACTIONS (4)
  - Extrasystoles [None]
  - Arrhythmia [None]
  - Laboratory test abnormal [None]
  - Blood thyroid stimulating hormone increased [None]

NARRATIVE: CASE EVENT DATE: 201412
